FAERS Safety Report 9861008 (Version 1)
Quarter: 2014Q1

REPORT INFORMATION
  Report Type: Spontaneous
  Country: DE (occurrence: DE)
  Receive Date: 20140202
  Receipt Date: 20140202
  Transmission Date: 20141002
  Serious: No
  Sender: FDA-Public Use
  Company Number: DE-ALLERGAN-1303025US

PATIENT
  Sex: Female

DRUGS (1)
  1. BOTOX [Suspect]
     Indication: FACIAL PARESIS
     Dosage: 22 UNITS, SINGLE
     Dates: start: 20130226, end: 20130226

REACTIONS (2)
  - Poor quality drug administered [Unknown]
  - Off label use [Unknown]
